FAERS Safety Report 6024437-2 (Version None)
Quarter: 2008Q4

REPORT INFORMATION
  Report Type: 
  Country: None (occurrence: None)
  Receive Date: 20081231
  Receipt Date: 20081222
  Transmission Date: 20090506
  Serious: Yes (Hospitalization)
  Sender: FDA-Public Use
  Company Number: PHHY2008NL30734

PATIENT
  Sex: Female
  Weight: 52 kg

DRUGS (4)
  1. FORADIL [Suspect]
     Indication: DYSPNOEA
     Dosage: 12MCG, 2 TIMER PER 1 DAYS 1DF
     Dates: start: 19990201, end: 20060624
  2. FORADIL [Suspect]
     Indication: RESPIRATORY DISORDER
  3. VENTOLIN [Suspect]
     Indication: DYSPNOEA
     Dosage: 4 TIMES PER 1 DAYS 1 DF
     Dates: start: 20030501, end: 20081029
  4. VENTOLIN [Suspect]
     Indication: RESPIRATORY DISORDER

REACTIONS (3)
  - BRONCHITIS [None]
  - PNEUMONIA [None]
  - X-RAY ABNORMAL [None]
